FAERS Safety Report 9686590 (Version 1)
Quarter: 2013Q4

REPORT INFORMATION
  Report Type: Spontaneous
  Country: US (occurrence: US)
  Receive Date: 20131113
  Receipt Date: 20131113
  Transmission Date: 20140711
  Serious: Yes (Other)
  Sender: FDA-Public Use
  Company Number: US-MYLANLABS-2013S1024839

PATIENT
  Age: 69 Year
  Sex: Female
  Weight: 84.82 kg

DRUGS (4)
  1. METOPROLOL TARTRATE TABLETS, USP [Suspect]
     Indication: BLOOD PRESSURE INCREASED
     Dosage: 25MG IN THE MORNING AND 12.5MG IN THE EVENING
     Route: 048
     Dates: start: 2011, end: 20131101
  2. METOPROLOL TARTRATE TABLETS, USP [Suspect]
     Indication: PALPITATIONS
     Dosage: 25MG IN THE MORNING AND 12.5MG IN THE EVENING
     Route: 048
     Dates: start: 2011, end: 20131101
  3. ARMOUR THYROID [Concomitant]
     Dosage: YEARS
  4. PREMARIN [Concomitant]

REACTIONS (2)
  - Hypoacusis [Not Recovered/Not Resolved]
  - Tinnitus [Not Recovered/Not Resolved]
